FAERS Safety Report 4302233-1 (Version None)
Quarter: 2004Q1

REPORT INFORMATION
  Report Type: 
  Country: None (occurrence: None)
  Receive Date: 20040220
  Receipt Date: 20040213
  Transmission Date: 20041129
  Serious: Yes (Hospitalization)
  Sender: FDA-Public Use
  Company Number: 2004199192FR

PATIENT
  Age: 80 Year
  Sex: Male

DRUGS (11)
  1. ALDACTONE [Suspect]
     Dosage: 75 MG, DAILY, ORAL
     Route: 048
     Dates: start: 20031110, end: 20040108
  2. OMEPRAZOLE [Suspect]
     Dosage: 20 MG, DAILY, ORAL
     Route: 048
     Dates: start: 20031110, end: 20040116
  3. DIFFU K [Concomitant]
  4. KREDEX [Concomitant]
  5. COVERSYL (PERINDOPRIL) [Concomitant]
  6. BUMETANIDE [Concomitant]
  7. COUMADIN [Concomitant]
  8. DIGOXIN [Concomitant]
  9. IMOVANE [Concomitant]
  10. ROFECOXIB [Concomitant]
  11. MUCOMYST [Concomitant]

REACTIONS (4)
  - ANAEMIA [None]
  - ANTIBODY TEST POSITIVE [None]
  - HYPONATRAEMIA [None]
  - THROMBOCYTOPENIA [None]
